FAERS Safety Report 7239872-4 (Version None)
Quarter: 2011Q1

REPORT INFORMATION
  Report Type: 
  Country: None (occurrence: None)
  Receive Date: 20110122
  Receipt Date: 20101214
  Transmission Date: 20110831
  Serious: No
  Sender: FDA-Public Use
  Company Number: US-ALLERGAN-1016282US

PATIENT
  Age: 25 Year
  Sex: Female

DRUGS (1)
  1. LATISSE [Suspect]
     Indication: EYELASH DISCOLOURATION
     Dosage: 1 GTT, QHS

REACTIONS (4)
  - MADAROSIS [None]
  - HAIR TEXTURE ABNORMAL [None]
  - THERAPEUTIC RESPONSE DECREASED [None]
  - HAIR GROWTH ABNORMAL [None]
